FAERS Safety Report 6731326-4 (Version None)
Quarter: 2010Q2

REPORT INFORMATION
  Report Type: 
  Country: None (occurrence: None)
  Receive Date: 20100517
  Receipt Date: 20100517
  Transmission Date: 20101027
  Serious: Yes (Hospitalization, Other)
  Sender: FDA-Public Use
  Company Number: None

PATIENT
  Age: 23 Year
  Sex: Female
  Weight: 65.7716 kg

DRUGS (1)
  1. DYSPORT [Suspect]
     Indication: TEMPOROMANDIBULAR JOINT SYNDROME
     Dosage: 20CC 1X IM
     Route: 030
     Dates: start: 20100504, end: 20100504

REACTIONS (6)
  - ANXIETY [None]
  - DYSPNOEA [None]
  - FATIGUE [None]
  - HEADACHE [None]
  - INSOMNIA [None]
  - MUSCULAR WEAKNESS [None]
